FAERS Safety Report 7310333-7 (Version None)
Quarter: 2011Q1

REPORT INFORMATION
  Report Type: 
  Country: None (occurrence: None)
  Receive Date: 20110214
  Receipt Date: 20101008
  Transmission Date: 20110831
  Serious: Yes (Other)
  Sender: FDA-Public Use
  Company Number: 018283

PATIENT
  Sex: Male
  Weight: 109.7705 kg

DRUGS (19)
  1. ACETMINOPHEN [Concomitant]
  2. VITAMIN D [Concomitant]
  3. FLAGYL [Concomitant]
  4. COENZYME [Concomitant]
  5. PREDNISONE [Suspect]
     Indication: CROHN'S DISEASE
     Dates: start: 20100626
  6. FOLIC ACID [Concomitant]
  7. TYLENOL [Concomitant]
  8. CIMZIA [Suspect]
     Indication: CROHN'S DISEASE
     Dosage: 400, 200  MG 1X2 WEEKS, 400 MG 1X MONTH,SUBCUTANEOUS
     Route: 058
     Dates: start: 20100422, end: 20100508
  9. CIMZIA [Suspect]
     Indication: CROHN'S DISEASE
     Dosage: 400, 200  MG 1X2 WEEKS, 400 MG 1X MONTH,SUBCUTANEOUS
     Route: 058
     Dates: start: 20100604, end: 20100702
  10. CIMZIA [Suspect]
     Indication: CROHN'S DISEASE
     Dosage: 400, 200  MG 1X2 WEEKS, 400 MG 1X MONTH,SUBCUTANEOUS
     Route: 058
     Dates: start: 20100723
  11. IRON [Concomitant]
  12. CALCIUM W/VITAMIN D NOS [Concomitant]
  13. COUMADIN [Concomitant]
  14. METHOTREXATE [Suspect]
     Indication: CROHN'S DISEASE
     Dates: start: 20100803, end: 20100824
  15. VITAMIN B-12 [Concomitant]
  16. IMODIUM [Concomitant]
  17. CIPRO [Concomitant]
  18. MULTI-VITAMINS [Concomitant]
  19. C-VITAMIN [Concomitant]

REACTIONS (6)
  - INTERNATIONAL NORMALISED RATIO INCREASED [None]
  - MULTIPLE-DRUG RESISTANCE [None]
  - OPPORTUNISTIC INFECTION [None]
  - STAPHYLOCOCCAL ABSCESS [None]
  - CROHN'S DISEASE [None]
  - CONDITION AGGRAVATED [None]
